FAERS Safety Report 4803321-3 (Version None)
Quarter: 2005Q3

REPORT INFORMATION
  Report Type: 
  Country: None (occurrence: None)
  Receive Date: 20050929
  Receipt Date: 20050816
  Transmission Date: 20060218
  Serious: Yes (Hospitalization)
  Sender: FDA-Public Use
  Company Number: 05P-163-0308377-00

PATIENT
  Age: 46 Year
  Sex: Female
  Weight: 83.9154 kg

DRUGS (17)
  1. HUMIRA [Suspect]
     Indication: RHEUMATOID ARTHRITIS
     Dosage: 40 MG, 1 IN 2 WK, SUBCUTANEOUS
     Route: 058
     Dates: start: 20030101, end: 20050718
  2. FOLIC ACID [Concomitant]
  3. CYCLOBENZAPRINE HCL [Concomitant]
  4. GLIPIZIDE [Concomitant]
  5. PREDNISONE [Concomitant]
  6. MAXZIDE [Concomitant]
  7. PANTOPRAZOLE [Concomitant]
  8. CELECOXIB [Concomitant]
  9. ZOCOR [Concomitant]
  10. GABAPENTIN [Concomitant]
  11. POTASSIUM CHLORIDE [Concomitant]
  12. METHOTREXATE [Concomitant]
  13. HYDROCODONE [Concomitant]
  14. BUTALBITAL/APAP [Concomitant]
  15. THEOPHYLLINE-SR [Concomitant]
  16. VENLAFAXINE HYDROCHLORIDE [Concomitant]
  17. MULTI-VITAMINS [Concomitant]

REACTIONS (5)
  - CANDIDIASIS [None]
  - INFECTION [None]
  - LIMB INJURY [None]
  - LOCALISED INFECTION [None]
  - SINUSITIS [None]
